FAERS Safety Report 10304370 (Version 2)
Quarter: 2014Q3

REPORT INFORMATION
  Report Type: Report from Study
  Country: US (occurrence: US)
  Receive Date: 20140715
  Receipt Date: 20140715
  Transmission Date: 20150326
  Serious: Yes (Death, Hospitalization)
  Sender: FDA-Public Use
  Company Number: US-ROCHE-1118509

PATIENT
  Age: 59 Year
  Sex: Female
  Weight: 65.76 kg

DRUGS (23)
  1. TYLENOL [Concomitant]
     Active Substance: ACETAMINOPHEN
     Route: 065
     Dates: start: 20120416
  2. ACYCLOVIR. [Concomitant]
     Active Substance: ACYCLOVIR
     Route: 065
     Dates: start: 20120223
  3. LEXAPRO [Concomitant]
     Active Substance: ESCITALOPRAM OXALATE
     Route: 065
     Dates: start: 20120807
  4. GS-1101 [Suspect]
     Active Substance: IDELALISIB
     Route: 048
     Dates: start: 20120919
  5. DECADRON [Concomitant]
     Active Substance: DEXAMETHASONE
     Route: 065
     Dates: start: 20120416
  6. BENADRYL [Concomitant]
     Active Substance: DIPHENHYDRAMINE HYDROCHLORIDE
     Route: 065
     Dates: start: 20120416
  7. ZYRTEC [Concomitant]
     Active Substance: CETIRIZINE HYDROCHLORIDE
     Route: 065
     Dates: start: 20120416, end: 20120807
  8. ALLOPURINOL. [Concomitant]
     Active Substance: ALLOPURINOL
     Route: 065
  9. OXYCODONE [Concomitant]
     Active Substance: OXYCODONE
     Route: 065
     Dates: start: 20120223
  10. LASIX [Concomitant]
     Active Substance: FUROSEMIDE
     Route: 065
     Dates: start: 20120917
  11. VANCOMYCIN [Concomitant]
     Active Substance: VANCOMYCIN
  12. CARVEDILOL. [Concomitant]
     Active Substance: CARVEDILOL
     Route: 065
     Dates: start: 20120402
  13. ZYRTEC [Concomitant]
     Active Substance: CETIRIZINE HYDROCHLORIDE
  14. LEXAPRO [Concomitant]
     Active Substance: ESCITALOPRAM OXALATE
     Route: 065
     Dates: start: 20120917
  15. BENEFIBER [Concomitant]
     Active Substance: STARCH, WHEAT
     Route: 065
     Dates: start: 20120402
  16. GENTAMYCIN [Concomitant]
     Active Substance: GENTAMICIN
  17. GS-1101 [Suspect]
     Active Substance: IDELALISIB
     Indication: CHRONIC LYMPHOCYTIC LEUKAEMIA
     Route: 048
     Dates: start: 20120416, end: 20120819
  18. RITUXIMAB [Suspect]
     Active Substance: RITUXIMAB
     Indication: CHRONIC LYMPHOCYTIC LEUKAEMIA
     Route: 042
     Dates: start: 20120416
  19. ALDACTONE (UNITED STATES) [Concomitant]
     Route: 065
     Dates: start: 20120312, end: 20130529
  20. CALTRATE [Concomitant]
     Active Substance: CALCIUM CARBONATE
     Route: 065
     Dates: start: 20120612, end: 20120917
  21. ALLEGRA [Concomitant]
     Active Substance: FEXOFENADINE HYDROCHLORIDE
     Route: 065
     Dates: start: 20120807
  22. CHLORAMBUCIL [Suspect]
     Active Substance: CHLORAMBUCIL
     Indication: CHRONIC LYMPHOCYTIC LEUKAEMIA
     Dosage: ONCE PER 28 DAYS
     Route: 048
     Dates: start: 20120416
  23. PROTONIX (UNITED STATES) [Concomitant]
     Route: 065
     Dates: start: 20120223

REACTIONS (3)
  - Pseudomonal bacteraemia [Fatal]
  - Aspergillus infection [Fatal]
  - Listeria sepsis [Recovered/Resolved]

NARRATIVE: CASE EVENT DATE: 20120820
